FAERS Safety Report 11449749 (Version 2)
Quarter: 2015Q4

REPORT INFORMATION
  Report Type: Spontaneous
  Country: GB (occurrence: GB)
  Receive Date: 20150903
  Receipt Date: 20151008
  Transmission Date: 20160304
  Serious: Yes (Disabling)
  Sender: FDA-Public Use
  Company Number: GB-AUROBINDO-AUR-APL-2015-07634

PATIENT
  Age: 85 Year
  Sex: Female

DRUGS (2)
  1. FLUCONAZOLE. [Suspect]
     Active Substance: FLUCONAZOLE
     Indication: PRODUCT USED FOR UNKNOWN INDICATION
     Route: 065
  2. AMOXICILLIN. [Suspect]
     Active Substance: AMOXICILLIN
     Indication: BLADDER DISORDER
     Dosage: 500 MG, 3 TIMES A DAY
     Route: 048

REACTIONS (5)
  - Reaction to drug excipients [Unknown]
  - Pruritus [Unknown]
  - Candida infection [Unknown]
  - Crystalluria [Unknown]
  - Muscle atrophy [Unknown]
